FAERS Safety Report 10759964 (Version 2)
Quarter: 2015Q1

REPORT INFORMATION
  Report Type: Report from Study
  Country: US (occurrence: US)
  Receive Date: 20150203
  Receipt Date: 20150324
  Transmission Date: 20150721
  Serious: Yes (Other)
  Sender: FDA-Public Use
  Company Number: PHEH2015US001809

PATIENT
  Sex: Female

DRUGS (1)
  1. TEKTURNA [Suspect]
     Active Substance: ALISKIREN HEMIFUMARATE
     Indication: PRODUCT USED FOR UNKNOWN INDICATION
     Dosage: 300 MG, QD
     Route: 048

REACTIONS (42)
  - Diabetes mellitus [Unknown]
  - Hypoxia [Unknown]
  - Hypertriglyceridaemia [Unknown]
  - Coronary artery disease [Unknown]
  - Hypothyroidism [Unknown]
  - Chest pain [Unknown]
  - Nephrolithiasis [Unknown]
  - Cough [Unknown]
  - Bronchitis chronic [Unknown]
  - Syncope [Unknown]
  - Pulmonary mass [Unknown]
  - Hypercalcaemia [Unknown]
  - Sleep disorder [Unknown]
  - Proteinuria [Unknown]
  - Osteoporosis [Unknown]
  - Altered state of consciousness [Unknown]
  - Amnesia [Unknown]
  - Upper-airway cough syndrome [Unknown]
  - Chronic obstructive pulmonary disease [Unknown]
  - Intervertebral disc degeneration [Unknown]
  - Anxiety [Unknown]
  - Asthma [Unknown]
  - Constipation [Unknown]
  - Back pain [Unknown]
  - Seasonal allergy [Unknown]
  - Mental status changes [Unknown]
  - Insomnia [Unknown]
  - Depression [Unknown]
  - Metabolic syndrome [Unknown]
  - Hypersensitivity [Unknown]
  - Urticaria [Unknown]
  - Pulmonary hypertension [Unknown]
  - Colon adenoma [Unknown]
  - Essential hypertension [Unknown]
  - Hypovolaemia [Unknown]
  - Fatigue [Unknown]
  - Pain in extremity [Unknown]
  - Chronic kidney disease [Unknown]
  - Sleep apnoea syndrome [Unknown]
  - Type V hyperlipidaemia [Unknown]
  - Gastrooesophageal reflux disease [Unknown]
  - Lactose intolerance [Unknown]
